FAERS Safety Report 5013122-1 (Version None)
Quarter: 2006Q2

REPORT INFORMATION
  Report Type: 
  Country: None (occurrence: None)
  Receive Date: 20060530
  Receipt Date: 20060301
  Transmission Date: 20061013
  Serious: No
  Sender: FDA-Public Use
  Company Number: US-GLAXOSMITHKLINE-A0595887A

PATIENT
  Age: 42 Year
  Sex: Female
  Weight: 65.9 kg

DRUGS (2)
  1. WELLBUTRIN XL [Suspect]
     Indication: DEPRESSION
     Dosage: 150MG PER DAY
     Route: 048
     Dates: start: 20060201
  2. AMBIEN [Concomitant]
     Indication: INSOMNIA
     Dosage: 5MG AS REQUIRED
     Route: 048
     Dates: start: 20050101

REACTIONS (1)
  - SENSORY DISTURBANCE [None]
